FAERS Safety Report 25396084 (Version 4)
Quarter: 2025Q3

REPORT INFORMATION
  Report Type: Report from Study
  Country: US (occurrence: US)
  Receive Date: 20250604
  Receipt Date: 20250915
  Transmission Date: 20251020
  Serious: Yes (Hospitalization, Other)
  Sender: TAKEDA
  Company Number: US-TAKEDA-2023TUS112040

PATIENT
  Sex: Female

DRUGS (20)
  1. PONATINIB [Suspect]
     Active Substance: PONATINIB
     Indication: Philadelphia positive acute lymphocytic leukaemia
     Dosage: 45 MILLIGRAM, QD
  2. PONATINIB [Suspect]
     Active Substance: PONATINIB
     Indication: Acute lymphocytic leukaemia
  3. PONATINIB [Suspect]
     Active Substance: PONATINIB
     Dosage: 30 MILLIGRAM, QD
  4. PONATINIB [Suspect]
     Active Substance: PONATINIB
     Dosage: 45 MILLIGRAM, QD
  5. PONATINIB [Suspect]
     Active Substance: PONATINIB
     Dosage: 30 MILLIGRAM, QD
  6. PONATINIB [Suspect]
     Active Substance: PONATINIB
     Dosage: 30 MILLIGRAM, QD
  7. PONATINIB [Suspect]
     Active Substance: PONATINIB
     Dosage: 30 MILLIGRAM, QD
  8. BLINCYTO [Suspect]
     Active Substance: BLINATUMOMAB
     Indication: Product used for unknown indication
  9. CIPRO [Concomitant]
     Active Substance: CIPROFLOXACIN HYDROCHLORIDE
  10. ACYCLOVIR [Concomitant]
     Active Substance: ACYCLOVIR
  11. HUMALOG [Concomitant]
     Active Substance: INSULIN LISPRO
  12. ALLOPURINOL [Concomitant]
     Active Substance: ALLOPURINOL
  13. CEFDINIR [Concomitant]
     Active Substance: CEFDINIR
  14. MECLIZINE [Concomitant]
     Active Substance: MECLIZINE HYDROCHLORIDE
  15. Vitamin k2 + d3 [Concomitant]
  16. B12 [Concomitant]
  17. FARXIGA [Concomitant]
     Active Substance: DAPAGLIFLOZIN PROPANEDIOL
  18. METOPROLOL TARTRATE [Concomitant]
     Active Substance: METOPROLOL TARTRATE
  19. ELIQUIS [Concomitant]
     Active Substance: APIXABAN
  20. OMEGA 3 [Concomitant]
     Active Substance: CAPSAICIN

REACTIONS (13)
  - Acute lymphocytic leukaemia recurrent [Unknown]
  - Rash [Unknown]
  - Atrial fibrillation [Unknown]
  - Brain fog [Unknown]
  - Gait disturbance [Unknown]
  - Product dose omission issue [Unknown]
  - Liver disorder [Unknown]
  - Lung disorder [Unknown]
  - Drug ineffective [Unknown]
  - Back pain [Unknown]
  - Palpitations [Unknown]
  - Blood pressure increased [Unknown]
  - Pyrexia [Unknown]
